FAERS Safety Report 13192439 (Version 2)
Quarter: 2017Q1

REPORT INFORMATION
  Report Type: Spontaneous
  Country: FR (occurrence: FR)
  Receive Date: 20170207
  Receipt Date: 20170331
  Transmission Date: 20170428
  Serious: Yes (Hospitalization, Disabling)
  Sender: FDA-Public Use
  Company Number: FR-TOLMAR, INC.-2017FR001185

PATIENT
  Age: 70 Year
  Sex: Male
  Weight: 84 kg

DRUGS (13)
  1. CASODEX [Concomitant]
     Active Substance: BICALUTAMIDE
  2. ELIGARD [Suspect]
     Active Substance: LEUPROLIDE ACETATE
     Indication: PROSTATE CANCER METASTATIC
     Dosage: 45 MG, EVERY 6 MONTHS
     Route: 058
     Dates: start: 20151006
  3. ATORVASTATIN [Concomitant]
     Active Substance: ATORVASTATIN
     Dosage: UNK
     Dates: start: 20080318
  4. DOLIPRANE [Concomitant]
     Active Substance: ACETAMINOPHEN
     Dosage: UNK
     Dates: start: 20080318
  5. ZOPICLONE [Concomitant]
     Active Substance: ZOPICLONE
  6. TRAMADOL. [Concomitant]
     Active Substance: TRAMADOL
     Dosage: UNK
  7. VASTAREL [Concomitant]
     Active Substance: TRIMETAZIDINE DIHYDROCHLORIDE
     Dosage: UNK
     Dates: start: 20080318
  8. NEBIVOLOL. [Concomitant]
     Active Substance: NEBIVOLOL
     Dosage: UNK
     Dates: start: 20080318
  9. ELIGARD [Suspect]
     Active Substance: LEUPROLIDE ACETATE
     Dosage: 45 MG, EVERY 6 MONTHS
     Route: 058
     Dates: start: 20160404
  10. KARDEGIC [Concomitant]
     Active Substance: ASPIRIN LYSINE
     Dosage: UNK
     Dates: start: 20080318
  11. ALLOPURINOL. [Concomitant]
     Active Substance: ALLOPURINOL
  12. ELIGARD [Suspect]
     Active Substance: LEUPROLIDE ACETATE
     Dosage: 45 MG, EVERY 6 MONTHS
     Route: 058
     Dates: start: 20161006
  13. LERCAN [Concomitant]
     Active Substance: LERCANIDIPINE
     Dosage: UNK
     Dates: start: 20080318

REACTIONS (6)
  - Sleep disorder [Unknown]
  - Hot flush [Unknown]
  - Dyspnoea [Not Recovered/Not Resolved]
  - Weight increased [Unknown]
  - Respiratory distress [Unknown]
  - Emphysema [Unknown]

NARRATIVE: CASE EVENT DATE: 20160315
